FAERS Safety Report 5480514-6 (Version None)
Quarter: 2007Q4

REPORT INFORMATION
  Report Type: 
  Country: None (occurrence: None)
  Receive Date: 20071009
  Receipt Date: 20071004
  Transmission Date: 20080405
  Serious: Yes (Other)
  Sender: FDA-Public Use
  Company Number: CA-ASTRAZENECA-2007UW21281

PATIENT
  Age: 22503 Day
  Sex: Female
  Weight: 87.3 kg

DRUGS (7)
  1. CRESTOR [Suspect]
     Indication: BLOOD CHOLESTEROL
     Route: 048
     Dates: start: 20070401, end: 20070802
  2. COUMADIN [Concomitant]
     Indication: ANTICOAGULANT THERAPY
     Dates: start: 19801101
  3. PREMARIN [Concomitant]
     Indication: HORMONE THERAPY
     Route: 048
     Dates: start: 19970901
  4. ZOCOR [Concomitant]
     Indication: BLOOD CHOLESTEROL
     Route: 048
     Dates: start: 20070801
  5. MONOCOR [Concomitant]
     Indication: HYPERTENSION
     Route: 048
     Dates: start: 20070801
  6. ACTONEL [Concomitant]
     Indication: MINERAL SUPPLEMENTATION
     Route: 048
     Dates: start: 20060601
  7. CALCIA [Concomitant]
     Indication: MINERAL SUPPLEMENTATION
     Route: 048
     Dates: start: 20060601

REACTIONS (1)
  - ATRIAL FIBRILLATION [None]
